FAERS Safety Report 7617201-1 (Version None)
Quarter: 2011Q3

REPORT INFORMATION
  Report Type: 
  Country: None (occurrence: None)
  Receive Date: 20110718
  Receipt Date: 20110705
  Transmission Date: 20111222
  Serious: Yes (Other)
  Sender: FDA-Public Use
  Company Number: US-JNJFOC-20101000696

PATIENT
  Sex: Male
  Weight: 156.49 kg

DRUGS (3)
  1. AZATHIOPRINE [Concomitant]
     Indication: COLITIS ULCERATIVE
     Route: 048
  2. REMICADE [Suspect]
     Indication: COLITIS ULCERATIVE
     Route: 042
     Dates: start: 20090101
  3. REMICADE [Suspect]
     Route: 042
     Dates: start: 20090501

REACTIONS (7)
  - BURNING SENSATION [None]
  - PAIN [None]
  - HYPOKINESIA [None]
  - COLITIS ULCERATIVE [None]
  - ABASIA [None]
  - BACK PAIN [None]
  - ARTHRALGIA [None]
